FAERS Safety Report 6606543-4 (Version None)
Quarter: 2010Q1

REPORT INFORMATION
  Report Type: 
  Country: None (occurrence: None)
  Receive Date: 20100226
  Receipt Date: 20100217
  Transmission Date: 20100710
  Serious: Yes (Hospitalization)
  Sender: FDA-Public Use
  Company Number: US-ABBOTT-10P-163-0624062-00

PATIENT
  Sex: Female

DRUGS (5)
  1. ERYTHROMYCIN BASE [Suspect]
     Indication: ROSACEA
     Dates: start: 19990101
  2. ERYTHROMYCIN BASE [Suspect]
  3. ERY TABLETS [Suspect]
     Indication: DRUG USE FOR UNKNOWN INDICATION
     Dates: start: 20091201
  4. ESTROGEN [Concomitant]
     Indication: HORMONE REPLACEMENT THERAPY
  5. PROGESTERONE [Concomitant]
     Indication: HORMONE REPLACEMENT THERAPY

REACTIONS (3)
  - ARTHRITIS [None]
  - DRUG DISPENSING ERROR [None]
  - ROTATOR CUFF SYNDROME [None]
